FAERS Safety Report 17053382 (Version 1)
Quarter: 2019Q4

REPORT INFORMATION
  Report Type: Spontaneous
  Country: HR (occurrence: HR)
  Receive Date: 20191120
  Receipt Date: 20191120
  Transmission Date: 20200122
  Serious: Yes (Other)
  Sender: FDA-Public Use
  Company Number: HR-MYLANLABS-2019M1110341

PATIENT
  Age: 67 Year
  Sex: Female

DRUGS (2)
  1. PEGFILGRASTIM MYLAN [Suspect]
     Active Substance: PEGFILGRASTIM
     Indication: CERVIX CARCINOMA STAGE III
     Dosage: UNK
     Route: 065
  2. FILGRASTIM [Suspect]
     Active Substance: FILGRASTIM
     Indication: CERVIX CARCINOMA STAGE III
     Dosage: UNK
     Route: 065

REACTIONS (4)
  - Influenza [Unknown]
  - Neutropenia [Unknown]
  - Myalgia [Unknown]
  - Bone pain [Unknown]
